FAERS Safety Report 7754454-3 (Version None)
Quarter: 2011Q3

REPORT INFORMATION
  Report Type: 
  Country: None (occurrence: None)
  Receive Date: 20110915
  Receipt Date: 20110909
  Transmission Date: 20111222
  Serious: Yes (Hospitalization)
  Sender: FDA-Public Use
  Company Number: US-AMGEN-USASP2011046228

PATIENT
  Age: 53 Year
  Sex: Female

DRUGS (1)
  1. ENBREL [Suspect]
     Indication: PSORIATIC ARTHROPATHY
     Dosage: UNK
     Dates: start: 20030101

REACTIONS (5)
  - KNEE ARTHROPLASTY [None]
  - INFECTION [None]
  - GAIT DISTURBANCE [None]
  - PSORIATIC ARTHROPATHY [None]
  - CELLULITIS [None]
